FAERS Safety Report 7570736-2 (Version None)
Quarter: 2011Q2

REPORT INFORMATION
  Report Type: 
  Country: None (occurrence: None)
  Receive Date: 20110624
  Receipt Date: 20110516
  Transmission Date: 20111010
  Serious: No
  Sender: FDA-Public Use
  Company Number: US-ALLERGAN-1106681US

PATIENT
  Age: 57 Year
  Sex: Female

DRUGS (3)
  1. EYELINER [Concomitant]
  2. LATISSE [Suspect]
     Indication: GROWTH OF EYELASHES
     Dosage: UNK
     Route: 061
     Dates: start: 20110401
  3. MASCARA [Concomitant]

REACTIONS (2)
  - EYELID PAIN [None]
  - ERYTHEMA OF EYELID [None]
